FAERS Safety Report 11466920 (Version 1)
Quarter: 2015Q3

REPORT INFORMATION
  Report Type: Spontaneous
  Country: NL (occurrence: NL)
  Receive Date: 20150908
  Receipt Date: 20150908
  Transmission Date: 20151125
  Serious: Yes (Other)
  Sender: FDA-Public Use
  Company Number: NL-CIPLA LTD.-2015NL07074

PATIENT

DRUGS (2)
  1. TOPOTECAN [Suspect]
     Active Substance: TOPOTECAN\TOPOTECAN HYDROCHLORIDE
     Indication: NEOPLASM
     Dosage: 2.5 MG, DAYS 1 TO 5 OF EACH 21 DAY CYCLE
     Route: 048
  2. PAZOPANIB [Suspect]
     Active Substance: PAZOPANIB
     Indication: NEOPLASM
     Dosage: 800 MG, DAILY IN 21 DAY CYCLE
     Route: 048

REACTIONS (1)
  - Pneumothorax [Unknown]
